FAERS Safety Report 19876936 (Version 1)
Quarter: 2021Q3

REPORT INFORMATION
  Report Type: Spontaneous
  Country: FR (occurrence: FR)
  Receive Date: 20210923
  Receipt Date: 20210923
  Transmission Date: 20211014
  Serious: Yes (Death)
  Sender: FDA-Public Use
  Company Number: FR-MYLANLABS-2021M1064499

PATIENT
  Age: 69 Year
  Sex: Male
  Weight: 84 kg

DRUGS (4)
  1. ETOPOSIDE MYLAN [Suspect]
     Active Substance: ETOPOSIDE
     Indication: TESTIS CANCER
     Dosage: 950 MILLIGRAM
     Route: 042
     Dates: start: 20201102, end: 20201124
  2. CISPLATINE [Suspect]
     Active Substance: CISPLATIN
     Indication: TESTIS CANCER
     Dosage: 190 MILLIGRAM
     Route: 042
     Dates: start: 20201102, end: 20201124
  3. ONDANSETRON [Concomitant]
     Active Substance: ONDANSETRON
     Indication: CHEMOTHERAPY SIDE EFFECT PROPHYLAXIS
     Dosage: 40 MILLIGRAM
     Route: 042
     Dates: start: 20201102, end: 20201124
  4. METHYLPREDNISOLONE. [Concomitant]
     Active Substance: METHYLPREDNISOLONE
     Indication: CHEMOTHERAPY SIDE EFFECT PROPHYLAXIS
     Dosage: 200 MILLIGRAM
     Route: 042
     Dates: start: 20201102, end: 20201124

REACTIONS (1)
  - Pulmonary embolism [Fatal]

NARRATIVE: CASE EVENT DATE: 20201124
